FAERS Safety Report 25469722 (Version 1)
Quarter: 2025Q2

REPORT INFORMATION
  Report Type: Spontaneous
  Country: US (occurrence: US)
  Receive Date: 20250623
  Receipt Date: 20250623
  Transmission Date: 20250716
  Serious: Yes (Hospitalization, Other)
  Sender: ELI LILLY AND COMPANY
  Company Number: US-ELI_LILLY_AND_COMPANY-US202506017276

PATIENT
  Age: 56 Year
  Sex: Male

DRUGS (1)
  1. HUMULIN 70/30 [Suspect]
     Active Substance: INSULIN HUMAN
     Indication: Product used for unknown indication
     Route: 065

REACTIONS (5)
  - Hiccups [Unknown]
  - Vomiting [Unknown]
  - Loss of consciousness [Unknown]
  - Dyspnoea [Unknown]
  - Diaphragmatic spasm [Unknown]
